FAERS Safety Report 4785127-7 (Version None)
Quarter: 2005Q3

REPORT INFORMATION
  Report Type: 
  Country: None (occurrence: None)
  Receive Date: 20050928
  Receipt Date: 20050913
  Transmission Date: 20060218
  Serious: Yes (Death)
  Sender: FDA-Public Use
  Company Number: 217759

PATIENT
  Sex: Male

DRUGS (5)
  1. MABTHERA(RITUXIMAB) CONC FOR SOLUTION FOR INFUSION [Suspect]
     Indication: NON-HODGKIN'S LYMPHOMA
     Dosage: 600 MG, INTRAVENOUS
     Route: 042
  2. CYCLOPHOSPHAMIDE [Suspect]
     Indication: NON-HODGKIN'S LYMPHOMA
  3. DOXORUBICIN HCL [Suspect]
     Indication: NON-HODGKIN'S LYMPHOMA
  4. VINCRISTINE [Suspect]
     Indication: NON-HODGKIN'S LYMPHOMA
  5. PREDNISONE [Suspect]
     Indication: NON-HODGKIN'S LYMPHOMA

REACTIONS (2)
  - PANCYTOPENIA [None]
  - SEPSIS [None]
